FAERS Safety Report 9653324 (Version 1)
Quarter: 2013Q4

REPORT INFORMATION
  Report Type: Spontaneous
  Country: US (occurrence: US)
  Receive Date: 20131029
  Receipt Date: 20131029
  Transmission Date: 20140711
  Serious: No
  Sender: FDA-Public Use
  Company Number: US-009507513-1310USA013493

PATIENT
  Sex: Male

DRUGS (2)
  1. MIRALAX [Suspect]
     Indication: ILL-DEFINED DISORDER
     Dosage: 17 G, QW
     Route: 048
  2. MIRALAX [Suspect]
     Dosage: 17 G, QD
     Route: 048

REACTIONS (2)
  - Abnormal faeces [Unknown]
  - Inappropriate schedule of drug administration [Unknown]
